FAERS Safety Report 12454808 (Version 1)
Quarter: 2016Q2

REPORT INFORMATION
  Report Type: Spontaneous
  Country: US (occurrence: None)
  Receive Date: 20160609
  Receipt Date: 20160609
  Transmission Date: 20160815
  Serious: Yes (Life-Threatening, Hospitalization, Disabling, Other)
  Sender: FDA-Public Use
  Company Number: None

PATIENT
  Age: 51 Year
  Sex: Female
  Weight: 72.12 kg

DRUGS (4)
  1. CAVITRON [Suspect]
     Active Substance: DEVICE
  2. METHOTREXATE [Suspect]
     Active Substance: METHOTREXATE
  3. HCTZ [Suspect]
     Active Substance: HYDROCHLOROTHIAZIDE
  4. POTASSIUM [Suspect]
     Active Substance: POTASSIUM

REACTIONS (5)
  - Aspiration [None]
  - Traumatic lung injury [None]
  - Lung abscess [None]
  - Bronchiectasis [None]
  - Procedural complication [None]

NARRATIVE: CASE EVENT DATE: 20150904
